FAERS Safety Report 10203537 (Version 1)
Quarter: 2014Q2

REPORT INFORMATION
  Report Type: Spontaneous
  Country: CA (occurrence: None)
  Receive Date: 20140523
  Receipt Date: 20140523
  Transmission Date: 20141212
  Serious: Yes (Other)
  Sender: FDA-Public Use
  Company Number: 2014000163

PATIENT
  Age: 70 Year
  Sex: Female

DRUGS (3)
  1. ACEON [Suspect]
     Indication: PRODUCT USED FOR UNKNOWN INDICATION
  2. DOXAZOSIN MESILATE [Suspect]
  3. MIRABEGRON [Suspect]
     Indication: PRODUCT USED FOR UNKNOWN INDICATION
     Route: 048

REACTIONS (4)
  - Blood pressure increased [None]
  - Insomnia [None]
  - Drug interaction [None]
  - Drug ineffective [None]
